FAERS Safety Report 24303424 (Version 1)
Quarter: 2024Q3

REPORT INFORMATION
  Report Type: Spontaneous
  Country: CA (occurrence: CA)
  Receive Date: 20240910
  Receipt Date: 20240910
  Transmission Date: 20241016
  Serious: Yes (Other)
  Sender: COVIS PHARMA
  Company Number: CA-Covis Pharma Europe B.V.-2024COV01069

PATIENT
  Sex: Female

DRUGS (1)
  1. OMNARIS [Suspect]
     Active Substance: CICLESONIDE
     Indication: Balance disorder
     Route: 045

REACTIONS (3)
  - Otitis media [Unknown]
  - Dizziness [Unknown]
  - Off label use [Unknown]
